FAERS Safety Report 20557902 (Version 1)
Quarter: 2022Q1

REPORT INFORMATION
  Report Type: Spontaneous
  Country: US (occurrence: US)
  Receive Date: 20220307
  Receipt Date: 20220307
  Transmission Date: 20220424
  Serious: No
  Sender: FDA-Public Use
  Company Number: US-GW PHARMA-202202USGW00954

PATIENT
  Age: 4 Year
  Sex: Female

DRUGS (1)
  1. EPIDIOLEX [Suspect]
     Active Substance: CANNABIDIOL
     Indication: White matter lesion
     Dosage: 50 MILLIGRAM
     Route: 048
     Dates: start: 20220211

REACTIONS (2)
  - Rash erythematous [Unknown]
  - Product use in unapproved indication [Unknown]

NARRATIVE: CASE EVENT DATE: 20220201
